FAERS Safety Report 10412151 (Version 2)
Quarter: 2014Q4

REPORT INFORMATION
  Report Type: Spontaneous
  Country: US (occurrence: US)
  Receive Date: 20140827
  Receipt Date: 20141009
  Transmission Date: 20150528
  Serious: No
  Sender: FDA-Public Use
  Company Number: US-PFIZER INC-2014236909

PATIENT
  Age: 68 Year
  Sex: Female

DRUGS (16)
  1. CENTRUM SPECIALIST MULTIVITAMIN/ MULTIMINERAL SUPPLEMENT [Concomitant]
     Dosage: UNK
  2. PREDNISONE. [Concomitant]
     Active Substance: PREDNISONE
     Indication: PAIN
     Dosage: 5 MG, 2X/DAY( TWICE A DAY IF NEEDED )
  3. ADVIL [Concomitant]
     Active Substance: IBUPROFEN
     Dosage: 200 MG, 2X/DAY (2 TABLETS TWICE A DAY)
  4. FLUTICASONE PROP [Concomitant]
     Indication: SINUS CONGESTION
     Dosage: 50 UG, UNK (INSTILL 2 SPRAYS INTO EACH NOSTRIL DAILY FOR SINUS)
     Route: 045
  5. TRIAMTERENE-HCTZ [Concomitant]
     Active Substance: HYDROCHLOROTHIAZIDE\TRIAMTERENE
     Dosage: (75-50 MG TAB BREAK INTO HALVES) (37.5/25) (1 DAILY)
  6. LEXAPRO [Concomitant]
     Active Substance: ESCITALOPRAM OXALATE
     Dosage: 10 MG, 1X/DAY
  7. XELJANZ [Suspect]
     Active Substance: TOFACITINIB CITRATE
     Indication: RHEUMATOID ARTHRITIS
     Dosage: 5 MG, 2X/DAY
     Route: 048
     Dates: start: 20140404
  8. SYSTANE LUBRICANT EYE DROP [Concomitant]
     Indication: DRY EYE
     Dosage: UNK (USE DURING DAY)
     Route: 047
  9. SYNTHROID [Concomitant]
     Active Substance: LEVOTHYROXINE SODIUM
     Indication: THYROID DISORDER
     Dosage: 0.1 MG, DAILY
  10. CALCIUM WITH VITAMIN D [Concomitant]
     Active Substance: CALCIUM\VITAMIN D
     Dosage: 1200 MG, 3X/DAY (SERVING SIZE 1 CAPLET 3 TIMES DAILY))
  11. MONTELUKAST [Concomitant]
     Active Substance: MONTELUKAST SODIUM
     Indication: HYPERSENSITIVITY
     Dosage: 10 MG, 1X/DAY
     Route: 048
  12. XELJANZ [Suspect]
     Active Substance: TOFACITINIB CITRATE
     Dosage: 5 MG, 2X/DAY
     Route: 048
     Dates: start: 201402, end: 20140821
  13. PRILOSEC OTC [Concomitant]
     Active Substance: OMEPRAZOLE MAGNESIUM
     Dosage: 20 MG, 1X/DAY
  14. TUMS [Concomitant]
     Active Substance: CALCIUM CARBONATE
     Dosage: UNK(WHENEVER NEEDED + MORE)
  15. PRED MILD [Concomitant]
     Active Substance: PREDNISOLONE ACETATE
     Dosage: 1 GTT, DAILY (INSTILL 1 DROP IN RIGHT EYE ONCE DAILY)
     Route: 047
  16. SALONPAS PAIN RELIEVING PATCH [Concomitant]
     Indication: PAIN
     Dosage: UNK(3 TO 4 TIMES DAILY FOR 7 DAYS.)

REACTIONS (2)
  - Skin ulcer [Unknown]
  - Skin discolouration [Unknown]

NARRATIVE: CASE EVENT DATE: 20140821
